FAERS Safety Report 23910882 (Version 1)
Quarter: 2024Q2

REPORT INFORMATION
  Report Type: Spontaneous
  Country: US (occurrence: US)
  Receive Date: 20240528
  Receipt Date: 20240528
  Transmission Date: 20240716
  Serious: No
  Sender: FDA-Public Use
  Company Number: US-AVADEL CNS PHARMACEUTICALS, LLC-2024AVA00536

PATIENT
  Sex: Female

DRUGS (7)
  1. LUMRYZ [Suspect]
     Active Substance: SODIUM OXYBATE
     Indication: Narcolepsy
     Dosage: 4.5 G
     Dates: start: 20240323, end: 20240329
  2. LUMRYZ [Suspect]
     Active Substance: SODIUM OXYBATE
     Indication: Narcolepsy
     Dosage: 6 G, ONCE NIGHTLY
     Dates: start: 20240330
  3. BUPROPION [Concomitant]
     Active Substance: BUPROPION
  4. LISDEXAMFETAMINE [Concomitant]
     Active Substance: LISDEXAMFETAMINE
  5. SERTRALINE [Concomitant]
     Active Substance: SERTRALINE HYDROCHLORIDE
  6. ALBUTEROL [Concomitant]
     Active Substance: ALBUTEROL
  7. MIRENA [Concomitant]
     Active Substance: LEVONORGESTREL
     Dosage: UNK, IUD
     Route: 015

REACTIONS (15)
  - Restlessness [Recovered/Resolved]
  - Balance disorder [Recovered/Resolved]
  - Crying [Recovered/Resolved]
  - Flushing [Recovered/Resolved]
  - Hypoaesthesia [Recovered/Resolved]
  - Initial insomnia [Recovered/Resolved]
  - Hypopnoea [Recovered/Resolved]
  - Fatigue [Not Recovered/Not Resolved]
  - Bronchial hyperreactivity [Unknown]
  - Paraesthesia [Recovered/Resolved]
  - Feeling drunk [Recovered/Resolved]
  - Panic reaction [Recovered/Resolved]
  - Hypertension [Recovered/Resolved]
  - Dizziness [Recovered/Resolved]
  - Tremor [Recovered/Resolved]

NARRATIVE: CASE EVENT DATE: 20040101
